FAERS Safety Report 7839726-6 (Version None)
Quarter: 2011Q4

REPORT INFORMATION
  Report Type: 
  Country: None (occurrence: None)
  Receive Date: 20111025
  Receipt Date: 20111013
  Transmission Date: 20120403
  Serious: Yes (Congenital Anomaly)
  Sender: FDA-Public Use
  Company Number: GB-RANBAXY-2011R1-49473

PATIENT

DRUGS (5)
  1. LEVOTHYROXINE SODIUM [Concomitant]
     Indication: HYPOTHYROIDISM
     Dosage: 75 UG, QD
     Route: 048
     Dates: start: 20100101
  2. SULFASALAZINE [Concomitant]
     Indication: ARTHROPATHY
     Dosage: 1 G, BID
     Route: 064
     Dates: start: 20100113
  3. FLUOXETINE [Suspect]
     Indication: DEPRESSION
     Dosage: UNK
     Route: 064
     Dates: start: 20100128, end: 20110819
  4. FERROUS FUMARATE [Concomitant]
     Indication: ANAEMIA
     Dosage: 210 MG, BID
     Route: 048
  5. QVAR 40 [Concomitant]
     Indication: ASTHMA
     Dosage: 2 DF, BID
     Route: 055
     Dates: start: 20101206

REACTIONS (1)
  - CLEFT PALATE [None]
